FAERS Safety Report 7733848-6 (Version None)
Quarter: 2011Q3

REPORT INFORMATION
  Report Type: 
  Country: None (occurrence: None)
  Receive Date: 20110907
  Receipt Date: 20110901
  Transmission Date: 20111222
  Serious: Yes (Death)
  Sender: FDA-Public Use
  Company Number: JP-SANOFI-AVENTIS-2011SA051576

PATIENT
  Age: 74 Year
  Sex: Female
  Weight: 63.3 kg

DRUGS (11)
  1. CLOPIDOGREL BISULFATE [Suspect]
     Route: 048
     Dates: start: 20100617, end: 20101210
  2. DOXAZOSIN MESYLATE [Concomitant]
     Indication: HYPERTENSION
     Route: 048
     Dates: start: 20100606, end: 20101210
  3. AMARYL [Concomitant]
     Indication: DIABETES MELLITUS
     Route: 048
     Dates: start: 20100606, end: 20101210
  4. LIPITOR [Concomitant]
     Indication: HYPERLIPIDAEMIA
     Route: 048
     Dates: start: 20100606, end: 20101210
  5. LASIX [Concomitant]
     Route: 048
     Dates: start: 20100606, end: 20101210
  6. ADALAT [Concomitant]
     Indication: HYPERTENSION
     Dosage: 20GM ONCE AND 40MG ONCE A DAY
     Route: 048
     Dates: start: 20100606, end: 20101210
  7. ZETIA [Concomitant]
     Indication: HYPERLIPIDAEMIA
     Route: 048
     Dates: start: 20100606, end: 20101210
  8. NITRODERM [Concomitant]
     Route: 062
     Dates: start: 20100616, end: 20100729
  9. CLOPIDOGREL BISULFATE [Suspect]
     Route: 048
     Dates: start: 20100616, end: 20100616
  10. ASPIRIN [Concomitant]
     Route: 048
     Dates: start: 20100606, end: 20101210
  11. CALBLOCK [Concomitant]
     Indication: HYPERTENSION
     Route: 048
     Dates: start: 20100606, end: 20101210

REACTIONS (1)
  - DEATH [None]
